FAERS Safety Report 24236072 (Version 4)
Quarter: 2025Q1

REPORT INFORMATION
  Report Type: Spontaneous
  Country: PT (occurrence: PT)
  Receive Date: 20240822
  Receipt Date: 20250227
  Transmission Date: 20250409
  Serious: Yes (Hospitalization, Other)
  Sender: AUROBINDO
  Company Number: PT-AUROBINDO-AUR-APL-2024-037304

PATIENT
  Age: 70 Year
  Sex: Female

DRUGS (3)
  1. AMOXICILLIN\CLAVULANIC ACID [Suspect]
     Active Substance: AMOXICILLIN\CLAVULANIC ACID
     Indication: Gastroenteritis
     Route: 065
  2. WARFARIN [Suspect]
     Active Substance: WARFARIN
     Indication: Cardiac valve prosthesis user
     Route: 065
     Dates: start: 2017
  3. ENOXAPARIN [Concomitant]
     Active Substance: ENOXAPARIN
     Indication: International normalised ratio
     Route: 065

REACTIONS (6)
  - Cutaneous vasculitis [Recovered/Resolved]
  - Drug interaction [Unknown]
  - Product use in unapproved indication [Unknown]
  - Skin lesion [Recovering/Resolving]
  - Palpable purpura [Recovering/Resolving]
  - Off label use [Unknown]
